FAERS Safety Report 5680410-5 (Version None)
Quarter: 2008Q1

REPORT INFORMATION
  Report Type: 
  Country: None (occurrence: None)
  Receive Date: 20080326
  Receipt Date: 20080325
  Transmission Date: 20080703
  Serious: Yes (Death, Other)
  Sender: FDA-Public Use
  Company Number: US-PURDUE-USA_2008_0031675

PATIENT
  Age: 26 Year
  Sex: Male
  Weight: 104 kg

DRUGS (4)
  1. OXYCODONE HCL [Suspect]
     Indication: DRUG ABUSE
     Dosage: UNK, UNK
  2. COCAINE [Suspect]
     Indication: DRUG ABUSE
     Dosage: UNK, UNK
  3. METHADON HCL TAB [Suspect]
     Indication: DRUG ABUSE
     Dosage: UNK, UNK
  4. ALPRAZOLAM [Suspect]
     Indication: DRUG ABUSE
     Dosage: UNK, UNK

REACTIONS (4)
  - ARTERIOSCLEROSIS [None]
  - CARDIOMEGALY [None]
  - MULTIPLE DRUG OVERDOSE ACCIDENTAL [None]
  - SUBSTANCE ABUSE [None]
